FAERS Safety Report 7332592-7 (Version None)
Quarter: 2011Q1

REPORT INFORMATION
  Report Type: 
  Country: None (occurrence: None)
  Receive Date: 20110304
  Receipt Date: 20110222
  Transmission Date: 20110831
  Serious: Yes (Death)
  Sender: FDA-Public Use
  Company Number: US-CELGENEUS-163-22393-10100825

PATIENT
  Sex: Male

DRUGS (6)
  1. ALLOPURINOL [Concomitant]
     Dosage: 100 MILLIGRAM
     Route: 065
     Dates: end: 20101004
  2. ISTODAX [Suspect]
     Indication: T-CELL LYMPHOMA
     Dosage: 14 MILLIGRAM/SQ. METER
     Route: 051
     Dates: start: 20100628, end: 20101001
  3. OXYCODONE [Concomitant]
     Indication: PAIN
     Dosage: 5 MILLIGRAM
     Route: 065
     Dates: end: 20101004
  4. MAGNESIUM [Concomitant]
     Dosage: 400 MILLIGRAM
     Route: 065
     Dates: end: 20101004
  5. ZESTRIL [Concomitant]
     Indication: HYPOTENSION
     Dosage: 40 MILLIGRAM
     Route: 048
     Dates: end: 20101004
  6. ATARAX [Concomitant]
     Dosage: 25 MILLIGRAM
     Route: 065
     Dates: end: 20101004

REACTIONS (1)
  - DEATH [None]
